FAERS Safety Report 4304554-5 (Version None)
Quarter: 2004Q1

REPORT INFORMATION
  Report Type: 
  Country: None (occurrence: None)
  Receive Date: 20040225
  Receipt Date: 20040225
  Transmission Date: 20041129
  Serious: Yes (Death, Hospitalization, Other)
  Sender: FDA-Public Use
  Company Number: None

PATIENT
  Age: 74 Year
  Sex: Female
  Weight: 81.5 kg

DRUGS (2)
  1. CARBOPLATIN [Suspect]
     Indication: ENDOMETRIAL CANCER STAGE IV
     Dosage: AUC 6=530 MG Q 21 DAYS
     Dates: start: 20030929, end: 20031222
  2. TAXOL [Suspect]
     Indication: ENDOMETRIAL CANCER STAGE IV
     Dosage: 175 MG/M2 =240 MG Q 21 DAYS
     Dates: start: 20030929, end: 20031222

REACTIONS (5)
  - ENDOMETRIAL CANCER STAGE IV [None]
  - MALIGNANT NEOPLASM PROGRESSION [None]
  - METASTASES TO BONE [None]
  - METASTASES TO LIVER [None]
  - METASTASES TO LUNG [None]
